FAERS Safety Report 20528315 (Version 1)
Quarter: 2022Q1

REPORT INFORMATION
  Report Type: Spontaneous
  Country: GB (occurrence: GB)
  Receive Date: 20220228
  Receipt Date: 20220228
  Transmission Date: 20220423
  Serious: Yes (Other)
  Sender: FDA-Public Use
  Company Number: None

PATIENT
  Age: 59 Year
  Sex: Male
  Weight: 76 kg

DRUGS (5)
  1. NAPROXEN [Suspect]
     Active Substance: NAPROXEN
     Indication: Product used for unknown indication
     Dosage: 500 MILLIGRAM,BID, ONE TABLET TO BE TAKEN TWICE A DAY WHEN REQUIRE...
     Dates: start: 20220202, end: 20220221
  2. BUPIVACAINE [Concomitant]
     Active Substance: BUPIVACAINE
     Dosage: FOR LOCAL ANAESTHESIA
     Dates: start: 20220128, end: 20220129
  3. FLUCLOXACILLIN [Concomitant]
     Active Substance: FLUCLOXACILLIN
     Dosage: 1 DOSAGE FORM, QID
     Dates: start: 20220202, end: 20220209
  4. LIDOCAINE [Concomitant]
     Active Substance: LIDOCAINE
     Dosage: 6 MILLILITER, 6MLS FOR LOCAL
     Dates: start: 20220128, end: 20220129
  5. OMEPRAZOLE [Concomitant]
     Active Substance: OMEPRAZOLE
     Dosage: 1 DOSAGE FORM,QD ONE CAPSULE TO BE TAKEN ONCE A DAY TO REDUCE ST...
     Dates: start: 20220202

REACTIONS (4)
  - Mouth swelling [Unknown]
  - Oropharyngeal discomfort [Unknown]
  - Hypersensitivity [Recovering/Resolving]
  - Angioedema [Unknown]

NARRATIVE: CASE EVENT DATE: 20220221
